FAERS Safety Report 6808476-7 (Version None)
Quarter: 2010Q2

REPORT INFORMATION
  Report Type: 
  Country: None (occurrence: None)
  Receive Date: 20100629
  Receipt Date: 20090624
  Transmission Date: 20101027
  Serious: No
  Sender: FDA-Public Use
  Company Number: US-PFIZER INC-2009234227

PATIENT
  Sex: Male
  Weight: 88.5 kg

DRUGS (6)
  1. VIAGRA [Interacting]
     Indication: ERECTILE DYSFUNCTION
     Dosage: 50 MG, AS NEEDED
  2. LISINOPRIL [Suspect]
     Indication: RENAL DISORDER
  3. VALSARTAN [Interacting]
     Indication: RENAL DISORDER
     Dosage: UNK
     Dates: start: 20090101
  4. PREVACID [Concomitant]
     Dosage: UNK
  5. ACETYLSALICYLIC ACID [Concomitant]
     Dosage: UNK
  6. LIPITOR [Concomitant]
     Dosage: UNK

REACTIONS (5)
  - CELLS IN URINE [None]
  - CYANOPSIA [None]
  - DRUG INEFFECTIVE [None]
  - NASAL CONGESTION [None]
  - TINNITUS [None]
